FAERS Safety Report 5212784-3 (Version None)
Quarter: 2007Q1

REPORT INFORMATION
  Report Type: 
  Country: None (occurrence: None)
  Receive Date: 20070118
  Receipt Date: 20070118
  Transmission Date: 20070707
  Serious: Yes (Other)
  Sender: FDA-Public Use
  Company Number: None

PATIENT
  Sex: Female
  Weight: 158.759 kg

DRUGS (7)
  1. LEFLUNOMIDE [Suspect]
     Indication: RHEUMATOID ARTHRITIS
     Dosage: 1 TABLET DAILY PO
     Route: 048
     Dates: start: 20061031, end: 20061203
  2. LISINOPRIL [Concomitant]
  3. HYDROCHLOROTHIAZIDE [Concomitant]
  4. PREDNISONE TAB [Concomitant]
  5. HCL [Concomitant]
  6. METFORMIN [Concomitant]
  7. ASPIRIN [Concomitant]

REACTIONS (4)
  - ASTHMA [None]
  - BLISTER [None]
  - DRUG HYPERSENSITIVITY [None]
  - PYREXIA [None]
